FAERS Safety Report 7936846-2 (Version None)
Quarter: 2011Q4

REPORT INFORMATION
  Report Type: 
  Country: None (occurrence: None)
  Receive Date: 20111123
  Receipt Date: 20111123
  Transmission Date: 20120403
  Serious: Yes (Other)
  Sender: FDA-Public Use
  Company Number: None

PATIENT
  Age: 47 Year
  Sex: Female
  Weight: 79.378 kg

DRUGS (1)
  1. ZUTRIPRO ORAL SOLUTION [Suspect]
     Indication: BRONCHITIS
     Dosage: 1 TSP

REACTIONS (2)
  - DIZZINESS [None]
  - VOMITING [None]
